FAERS Safety Report 7021561-2 (Version None)
Quarter: 2010Q3

REPORT INFORMATION
  Report Type: 
  Country: None (occurrence: None)
  Receive Date: 20100928
  Receipt Date: 20100913
  Transmission Date: 20110219
  Serious: Yes (Hospitalization)
  Sender: FDA-Public Use
  Company Number: 2010AM003034

PATIENT
  Age: 85 Year
  Sex: Female
  Weight: 104.3273 kg

DRUGS (7)
  1. SYMLIN [Suspect]
     Indication: TYPE 2 DIABETES MELLITUS
     Dosage: 60 MCG;TID;SC, 30 MCG;TID;SC, 15 MCG;TID;SC, 60 MCG;TID;SC
     Route: 058
     Dates: start: 20070101, end: 20100101
  2. SYMLIN [Suspect]
     Indication: TYPE 2 DIABETES MELLITUS
     Dosage: 60 MCG;TID;SC, 30 MCG;TID;SC, 15 MCG;TID;SC, 60 MCG;TID;SC
     Route: 058
     Dates: start: 20100101, end: 20100101
  3. SYMLIN [Suspect]
     Indication: TYPE 2 DIABETES MELLITUS
     Dosage: 60 MCG;TID;SC, 30 MCG;TID;SC, 15 MCG;TID;SC, 60 MCG;TID;SC
     Route: 058
     Dates: start: 20100101, end: 20100912
  4. SYMLIN [Suspect]
     Indication: TYPE 2 DIABETES MELLITUS
     Dosage: 60 MCG;TID;SC, 30 MCG;TID;SC, 15 MCG;TID;SC, 60 MCG;TID;SC
     Route: 058
     Dates: start: 20100101
  5. LANTUS [Concomitant]
  6. ORAL BLOOD GLUCOSE LOWERING DRUGS [Concomitant]
  7. ANTIHYPERTENSIVES [Concomitant]

REACTIONS (11)
  - BLOOD GLUCOSE INCREASED [None]
  - CEREBROVASCULAR ACCIDENT [None]
  - CONFUSIONAL STATE [None]
  - DIZZINESS [None]
  - GLYCOSYLATED HAEMOGLOBIN INCREASED [None]
  - HYPERTENSION [None]
  - INCORRECT DOSE ADMINISTERED [None]
  - MEMORY IMPAIRMENT [None]
  - NAUSEA [None]
  - PNEUMONIA [None]
  - WEIGHT INCREASED [None]
